FAERS Safety Report 13343598 (Version 1)
Quarter: 2017Q1

REPORT INFORMATION
  Report Type: Spontaneous
  Country: US (occurrence: US)
  Receive Date: 20170316
  Receipt Date: 20170316
  Transmission Date: 20170428
  Serious: Yes (Other)
  Sender: FDA-Public Use
  Company Number: US-BAYER-2017-049867

PATIENT
  Age: 19 Year
  Sex: Female

DRUGS (1)
  1. MIRENA [Suspect]
     Active Substance: LEVONORGESTREL
     Indication: CONTRACEPTION
     Dosage: 20 MCG/24HR, CONT
     Route: 015
     Dates: start: 201601, end: 2016

REACTIONS (6)
  - Embedded device [None]
  - Pregnancy with contraceptive device [None]
  - Mobility decreased [None]
  - Drug ineffective [None]
  - Abdominal pain lower [None]
  - Device difficult to use [None]

NARRATIVE: CASE EVENT DATE: 2016
